FAERS Safety Report 9186390 (Version 2)
Quarter: 2013Q2

REPORT INFORMATION
  Report Type: Spontaneous
  Country: IT (occurrence: IT)
  Receive Date: 20130325
  Receipt Date: 20130405
  Transmission Date: 20140414
  Serious: Yes (Hospitalization)
  Sender: FDA-Public Use
  Company Number: IT-MERCK-1301ITA014778

PATIENT
  Age: 60 Year
  Sex: Female
  Weight: 60 kg

DRUGS (9)
  1. PEGINTRON [Suspect]
     Indication: CHRONIC HEPATITIS C
     Dosage: 80 MICROGRAM,WEEKLY
     Route: 058
     Dates: start: 20111028, end: 20111123
  2. PEGINTRON [Suspect]
     Dosage: 50 MICROGRAM,WEEKLY
     Route: 058
     Dates: start: 20111123, end: 20111201
  3. PEGINTRON [Suspect]
     Dosage: 80 MICROGRAM,WEEKLY
     Route: 058
     Dates: start: 20111201, end: 20120724
  4. VICTRELIS [Suspect]
     Indication: CHRONIC HEPATITIS C
     Dosage: 2400 MG, DAILY
     Route: 048
     Dates: start: 20111219, end: 20120724
  5. COPEGUS [Suspect]
     Indication: CHRONIC HEPATITIS C
     Dosage: UNK UNK, QD
     Route: 048
     Dates: start: 20111028, end: 20111123
  6. COPEGUS [Suspect]
     Dosage: UNK UNK, QD
     Route: 048
     Dates: start: 20111123, end: 20120207
  7. COPEGUS [Suspect]
     Dosage: UNK UNK, QD
     Route: 048
     Dates: start: 20120211, end: 20120724
  8. WARFARIN [Concomitant]
     Indication: CARDIAC VALVE DISEASE
     Dosage: UNK
  9. WARFARIN [Concomitant]
     Indication: ATRIAL FIBRILLATION

REACTIONS (9)
  - Weight decreased [Recovered/Resolved]
  - Asthenia [Recovered/Resolved]
  - Decreased appetite [Recovered/Resolved]
  - Anaemia [Not Recovered/Not Resolved]
  - Pyrexia [Recovered/Resolved]
  - Transfusion [Recovered/Resolved]
  - Staphylococcus test positive [Recovered/Resolved]
  - Anaemia [Not Recovered/Not Resolved]
  - Anaemia [Recovered/Resolved]
